FAERS Safety Report 5326946-8 (Version None)
Quarter: 2007Q2

REPORT INFORMATION
  Report Type: 
  Country: None (occurrence: None)
  Receive Date: 20070511
  Receipt Date: 20070501
  Transmission Date: 20071010
  Serious: Yes (Other)
  Sender: FDA-Public Use
  Company Number: 012935

PATIENT
  Age: 57 Year
  Sex: Female

DRUGS (5)
  1. PRIALT [Suspect]
     Indication: BACK PAIN
     Dosage: ONCE, /HOUR, INTRATHECAL
     Route: 037
     Dates: start: 20070101
  2. PRIALT [Suspect]
     Indication: INTERVERTEBRAL DISC DEGENERATION
     Dosage: ONCE, /HOUR, INTRATHECAL
     Route: 037
     Dates: start: 20070101
  3. PRIALT [Suspect]
     Indication: POST LAMINECTOMY SYNDROME
     Dosage: ONCE, /HOUR, INTRATHECAL
     Route: 037
     Dates: start: 20070101
  4. PRIALT [Suspect]
     Indication: SURGERY
     Dosage: ONCE, /HOUR, INTRATHECAL
     Route: 037
     Dates: start: 20070101
  5. DILAUDID [Concomitant]

REACTIONS (8)
  - COORDINATION ABNORMAL [None]
  - FALL [None]
  - GAIT DISTURBANCE [None]
  - HYPOAESTHESIA [None]
  - MOVEMENT DISORDER [None]
  - MUSCLE DISORDER [None]
  - PARAESTHESIA [None]
  - PARAPARESIS [None]
